FAERS Safety Report 5323274-1 (Version None)
Quarter: 2007Q2

REPORT INFORMATION
  Report Type: 
  Country: None (occurrence: None)
  Receive Date: 20070220
  Receipt Date: 20061201
  Transmission Date: 20071010
  Serious: No
  Sender: FDA-Public Use
  Company Number: WAES 0612USA00252

PATIENT
  Age: 63 Year
  Sex: Male

DRUGS (1)
  1. JANUVIA [Suspect]
     Dosage: 100 MG/DAILY/PO
     Route: 048

REACTIONS (3)
  - DIZZINESS [None]
  - FEELING ABNORMAL [None]
  - STOMACH DISCOMFORT [None]
